FAERS Safety Report 16348417 (Version 1)
Quarter: 2019Q2

REPORT INFORMATION
  Report Type: Spontaneous
  Country: JP (occurrence: JP)
  Receive Date: 20190523
  Receipt Date: 20190523
  Transmission Date: 20190711
  Serious: Yes (Death, Hospitalization)
  Sender: FDA-Public Use
  Company Number: JP-TEVA-2019-JP-1052936

PATIENT
  Age: 59 Year
  Sex: Male

DRUGS (19)
  1. TACROLIMUS. [Suspect]
     Active Substance: TACROLIMUS
     Route: 065
     Dates: start: 201710
  2. CICLOSPORIN [Suspect]
     Active Substance: CYCLOSPORINE
     Indication: IMMUNOSUPPRESSANT DRUG THERAPY
     Route: 065
     Dates: start: 201711
  3. CICLOSPORIN [Suspect]
     Active Substance: CYCLOSPORINE
     Route: 065
     Dates: start: 201712
  4. MYCOPHENOLATE MOFETIL. [Suspect]
     Active Substance: MYCOPHENOLATE MOFETIL
     Indication: IMMUNOSUPPRESSANT DRUG THERAPY
     Route: 065
     Dates: start: 201710
  5. METHYLPREDNISOLONE. [Suspect]
     Active Substance: METHYLPREDNISOLONE
     Route: 065
     Dates: start: 201710
  6. CICLOSPORIN [Suspect]
     Active Substance: CYCLOSPORINE
     Route: 065
     Dates: start: 201712
  7. PREDNISOLONE. [Suspect]
     Active Substance: PREDNISOLONE
     Route: 065
     Dates: start: 201712
  8. METHYLPREDNISOLONE. [Suspect]
     Active Substance: METHYLPREDNISOLONE
     Route: 065
     Dates: start: 201711
  9. METHYLPREDNISOLONE. [Suspect]
     Active Substance: METHYLPREDNISOLONE
     Route: 065
     Dates: start: 201711
  10. BASILIXIMAB [Suspect]
     Active Substance: BASILIXIMAB
     Indication: IMMUNOSUPPRESSANT DRUG THERAPY
     Dosage: 2 DOSES
     Route: 065
     Dates: start: 201710
  11. TACROLIMUS. [Suspect]
     Active Substance: TACROLIMUS
     Indication: IMMUNOSUPPRESSANT DRUG THERAPY
     Route: 065
     Dates: start: 201710
  12. METHYLPREDNISOLONE. [Suspect]
     Active Substance: METHYLPREDNISOLONE
     Indication: IMMUNOSUPPRESSANT DRUG THERAPY
     Route: 065
     Dates: start: 201710
  13. METHYLPREDNISOLONE. [Suspect]
     Active Substance: METHYLPREDNISOLONE
     Route: 065
     Dates: start: 201710
  14. PREDNISOLONE. [Suspect]
     Active Substance: PREDNISOLONE
     Route: 065
     Dates: start: 201712
  15. MYCOPHENOLATE MOFETIL. [Suspect]
     Active Substance: MYCOPHENOLATE MOFETIL
     Route: 065
     Dates: start: 201711
  16. CICLOSPORIN [Suspect]
     Active Substance: CYCLOSPORINE
     Route: 065
     Dates: start: 201711
  17. MYCOPHENOLATE MOFETIL. [Suspect]
     Active Substance: MYCOPHENOLATE MOFETIL
     Route: 065
     Dates: start: 201711
  18. PREDNISOLONE. [Suspect]
     Active Substance: PREDNISOLONE
     Route: 065
  19. METHYLPREDNISOLONE. [Suspect]
     Active Substance: METHYLPREDNISOLONE
     Route: 065
     Dates: start: 201710

REACTIONS (8)
  - Hepatitis cholestatic [Fatal]
  - Hepatic failure [Fatal]
  - Hepatic fibrosis [Fatal]
  - Hepatic atrophy [Fatal]
  - Gastric ulcer haemorrhage [Fatal]
  - Platelet count decreased [Unknown]
  - Hepatitis C RNA increased [Fatal]
  - Prothrombin time prolonged [Unknown]

NARRATIVE: CASE EVENT DATE: 2017
